FAERS Safety Report 5202824-X (Version None)
Quarter: 2006Q4

REPORT INFORMATION
  Report Type: 
  Country: None (occurrence: None)
  Receive Date: 20061016
  Receipt Date: 20060815
  Transmission Date: 20070319
  Serious: No
  Sender: FDA-Public Use
  Company Number: 2006SP003035

PATIENT
  Age: 73 Year
  Sex: Male
  Weight: 81.6475 kg

DRUGS (3)
  1. LUNESTA [Suspect]
     Indication: INSOMNIA
     Dosage: 3 MG; PRN; ORAL
     Route: 048
     Dates: start: 20060601, end: 20060815
  2. ATORVASTATIN CALCIUM [Concomitant]
  3. KEPPRA [Concomitant]

REACTIONS (2)
  - DYSGEUSIA [None]
  - SOMNOLENCE [None]
